FAERS Safety Report 5330725-5 (Version None)
Quarter: 2007Q2

REPORT INFORMATION
  Report Type: 
  Country: None (occurrence: None)
  Receive Date: 20070522
  Receipt Date: 20070516
  Transmission Date: 20071010
  Serious: Yes (Other)
  Sender: FDA-Public Use
  Company Number: PHEH2007US07519

PATIENT
  Age: 60 Year
  Sex: Female
  Weight: 100.68 kg

DRUGS (3)
  1. ZOMETA [Suspect]
     Indication: METASTASES TO BONE
     Dosage: 4MG MONTHLY
     Route: 042
     Dates: start: 20041204, end: 20060701
  2. THALIDOMID [Concomitant]
  3. DEXAMETHASONE 0.5MG TAB [Concomitant]

REACTIONS (3)
  - OSTEONECROSIS [None]
  - PAIN IN JAW [None]
  - TOOTH EXTRACTION [None]
